FAERS Safety Report 23148710 (Version 2)
Quarter: 2023Q4

REPORT INFORMATION
  Report Type: Spontaneous
  Country: US (occurrence: US)
  Receive Date: 20231106
  Receipt Date: 20231108
  Transmission Date: 20240110
  Serious: No
  Sender: FDA-Public Use
  Company Number: US-AMGEN-USASP2023197855

PATIENT
  Age: 82 Year
  Sex: Female

DRUGS (1)
  1. AMJEVITA [Suspect]
     Active Substance: ADALIMUMAB-ATTO
     Indication: Anticoagulant therapy
     Dosage: 40 MILLIGRAM, Q2WK
     Route: 065
     Dates: start: 2023

REACTIONS (5)
  - Drug dose omission by device [Unknown]
  - Off label use [Unknown]
  - Device difficult to use [Unknown]
  - Product communication issue [Unknown]
  - Device use error [Unknown]

NARRATIVE: CASE EVENT DATE: 20230101
